FAERS Safety Report 10425272 (Version 2)
Quarter: 2014Q4

REPORT INFORMATION
  Report Type: Spontaneous
  Country: JP (occurrence: JP)
  Receive Date: 20140902
  Receipt Date: 20141103
  Transmission Date: 20150528
  Serious: Yes (Other)
  Sender: FDA-Public Use
  Company Number: PHHY2013JP161772

PATIENT
  Age: 31 Year
  Sex: Male
  Weight: 65 kg

DRUGS (9)
  1. SIMULECT [Concomitant]
     Active Substance: BASILIXIMAB
     Indication: PRODUCT USED FOR UNKNOWN INDICATION
     Dosage: UNK UKN, UNK
     Route: 065
  2. NORVASC [Concomitant]
     Active Substance: AMLODIPINE BESYLATE
     Indication: HYPERTENSION
     Dosage: 5 MG
     Route: 048
     Dates: start: 20060404
  3. FUNGIZONE [Concomitant]
     Active Substance: AMPHOTERICIN B
     Indication: OPPORTUNISTIC INFECTION PROPHYLAXIS
     Dosage: 200 MG
     Route: 048
     Dates: start: 20060404, end: 20070901
  4. BREDININ [Suspect]
     Active Substance: MIZORIBINE
     Indication: IMMUNOSUPPRESSION
     Dosage: 300 MG
     Route: 048
     Dates: start: 20060404, end: 20070421
  5. NEORAL [Suspect]
     Active Substance: CYCLOSPORINE
     Indication: RENAL TRANSPLANT
     Dosage: 250 MG
     Route: 048
     Dates: start: 20060404
  6. NEORAL [Suspect]
     Active Substance: CYCLOSPORINE
     Indication: IMMUNOSUPPRESSION
     Dosage: 200 MG, QD
     Route: 065
  7. NEORAL [Suspect]
     Active Substance: CYCLOSPORINE
     Dosage: 300 MG, QD
     Route: 065
     Dates: end: 20140517
  8. PREDONINE [Suspect]
     Active Substance: PREDNISOLONE\PREDNISOLONE ACETATE\PREDNISOLONE SODIUM SUCCINATE
     Indication: IMMUNOSUPPRESSION
     Dosage: 7.5 MG
     Route: 048
     Dates: start: 20060404, end: 20121006
  9. PROTECADIN [Concomitant]
     Active Substance: LAFUTIDINE
     Indication: PRODUCT USED FOR UNKNOWN INDICATION
     Dosage: 20 MG
     Route: 048
     Dates: start: 20060404

REACTIONS (16)
  - Neutrophil percentage increased [Recovered/Resolved]
  - White blood cell count increased [Recovered/Resolved]
  - Lymphocyte percentage decreased [Unknown]
  - Haematuria [Recovering/Resolving]
  - Red blood cell count increased [Recovered/Resolved]
  - Aspartate aminotransferase increased [Recovered/Resolved]
  - Gamma-glutamyltransferase increased [Unknown]
  - Cytomegalovirus infection [Recovered/Resolved]
  - Blood alkaline phosphatase increased [Recovered/Resolved]
  - Alanine aminotransferase increased [Recovered/Resolved]
  - Proteinuria [Recovering/Resolving]
  - Kidney transplant rejection [Recovered/Resolved]
  - Haematocrit increased [Recovered/Resolved]
  - Blood potassium increased [Not Recovered/Not Resolved]
  - Blood urea increased [Recovered/Resolved]
  - Blood creatinine increased [Recovering/Resolving]

NARRATIVE: CASE EVENT DATE: 20060610
